FAERS Safety Report 5098889-9 (Version None)
Quarter: 2006Q3

REPORT INFORMATION
  Report Type: 
  Country: None (occurrence: None)
  Receive Date: 20060905
  Receipt Date: 20060823
  Transmission Date: 20061208
  Serious: Yes (Death, Other)
  Sender: FDA-Public Use
  Company Number: USA-2006-0025067

PATIENT
  Age: 41 Year
  Sex: Male

DRUGS (1)
  1. OXYCONTIN [Suspect]
     Indication: PAIN

REACTIONS (4)
  - AGGRESSION [None]
  - COMA [None]
  - ELECTRIC SHOCK [None]
  - PAIN [None]
